FAERS Safety Report 26130234 (Version 2)
Quarter: 2025Q4

REPORT INFORMATION
  Report Type: Spontaneous
  Country: GB (occurrence: GB)
  Receive Date: 20251208
  Receipt Date: 20251211
  Transmission Date: 20260118
  Serious: Yes (Other)
  Sender: ESPERION THERAPEUTICS
  Company Number: None

PATIENT

DRUGS (8)
  1. BEMPEDOIC ACID\EZETIMIBE [Suspect]
     Active Substance: BEMPEDOIC ACID\EZETIMIBE
     Indication: Product used for unknown indication
     Dosage: 180 MILLIGRAM
     Route: 065
     Dates: start: 20251111
  2. CLINITAS [CARBOMER] [Concomitant]
     Indication: Ill-defined disorder
     Dosage: ONE DROP TO EYE(S) AS DIRECTED. EACH UNIT DOSE ...
     Route: 065
     Dates: start: 20240417
  3. AMITRIPTYLINE HYDROCHLORIDE [Concomitant]
     Active Substance: AMITRIPTYLINE HYDROCHLORIDE
     Indication: Ill-defined disorder
     Dosage: TAKE ONE TABLET EVERY EVENING (12 HOURS BEFORE ...
     Route: 065
     Dates: start: 20240618, end: 20251006
  4. ASPIRIN [Concomitant]
     Active Substance: ASPIRIN
     Indication: Ill-defined disorder
     Dosage: TAKE 1 TABLET ONCE A DAY WITH FOOD
     Route: 065
     Dates: start: 20250922
  5. EZETIMIBE [Concomitant]
     Active Substance: EZETIMIBE
     Indication: Ill-defined disorder
     Dosage: TAKE 1 TABLET ONCE A DAY
     Route: 065
     Dates: start: 20250922, end: 20251111
  6. PRAVASTATIN [Concomitant]
     Active Substance: PRAVASTATIN
     Indication: Ill-defined disorder
     Dosage: TAKE 1 TABLET AT NIGHT
     Route: 065
     Dates: start: 20250922, end: 20251111
  7. ACETAMINOPHEN [Concomitant]
     Active Substance: ACETAMINOPHEN
     Indication: Ill-defined disorder
     Dosage: TAKE TWO TABLETS UP TO FOUR TIMES DAILY
     Route: 065
     Dates: start: 20251006
  8. TADALAFIL [Concomitant]
     Active Substance: TADALAFIL
     Indication: Ill-defined disorder
     Dosage: TAKE 1 TABLET ONCE A DAY, MAY BE REDUCED TO HAL...
     Route: 065
     Dates: start: 20251111

REACTIONS (4)
  - Supraventricular tachycardia [Recovered/Resolved]
  - Gastrooesophageal reflux disease [Unknown]
  - Constipation [Unknown]
  - Dyspepsia [Unknown]

NARRATIVE: CASE EVENT DATE: 20251114
